APPROVED DRUG PRODUCT: MEFLOQUINE HYDROCHLORIDE
Active Ingredient: MEFLOQUINE HYDROCHLORIDE
Strength: 250MG
Dosage Form/Route: TABLET;ORAL
Application: A076175 | Product #001 | TE Code: AB
Applicant: CHARTWELL RX SCIENCES LLC
Approved: Feb 20, 2002 | RLD: No | RS: No | Type: RX